FAERS Safety Report 8126639-8 (Version None)
Quarter: 2012Q1

REPORT INFORMATION
  Report Type: 
  Country: None (occurrence: None)
  Receive Date: 20120210
  Receipt Date: 20120131
  Transmission Date: 20120608
  Serious: No
  Sender: FDA-Public Use
  Company Number: US-BIOGENIDEC-2012BI001652

PATIENT
  Age: 41 Year
  Sex: Female

DRUGS (2)
  1. TYSABRI [Suspect]
     Indication: MULTIPLE SCLEROSIS
     Route: 042
     Dates: start: 20080117, end: 20081222
  2. TYSABRI [Suspect]
     Route: 042
     Dates: start: 20100217

REACTIONS (3)
  - MULTIPLE SCLEROSIS RELAPSE [None]
  - VISUAL IMPAIRMENT [None]
  - PARAESTHESIA [None]
